FAERS Safety Report 16719991 (Version 1)
Quarter: 2019Q4

REPORT INFORMATION
  Report Type: Spontaneous
  Country: US (occurrence: US)
  Receive Date: 20190819
  Receipt Date: 20190819
  Transmission Date: 20200122
  Serious: Yes (Hospitalization)
  Sender: FDA-Public Use
  Company Number: None

PATIENT
  Age: 58 Year
  Sex: Female
  Weight: 56 kg

DRUGS (15)
  1. DECADRON [Concomitant]
     Active Substance: DEXAMETHASONE
  2. BRAFTOVI [Suspect]
     Active Substance: ENCORAFENIB
     Indication: MALIGNANT LYMPHOID NEOPLASM
     Route: 048
     Dates: start: 20190204
  3. LISINOPRIL-HYDROCHLOROTHIAZIDE [Concomitant]
     Active Substance: HYDROCHLOROTHIAZIDE\LISINOPRIL
  4. OMEGA 3 [Concomitant]
     Active Substance: OMEGA-3 FATTY ACIDS
  5. MORPHINE [Concomitant]
     Active Substance: MORPHINE
  6. ESTRADIOL. [Concomitant]
     Active Substance: ESTRADIOL
  7. PERCOCET [Concomitant]
     Active Substance: ACETAMINOPHEN\OXYCODONE HYDROCHLORIDE
  8. DOCUSATE [Concomitant]
     Active Substance: DOCUSATE
  9. GABAPENTIN. [Concomitant]
     Active Substance: GABAPENTIN
  10. LINZESS [Concomitant]
     Active Substance: LINACLOTIDE
  11. CALCIUM CARBONATE. [Concomitant]
     Active Substance: CALCIUM CARBONATE
  12. LORAZEPAM. [Concomitant]
     Active Substance: LORAZEPAM
  13. TAMIFLU [Concomitant]
     Active Substance: OSELTAMIVIR PHOSPHATE
  14. MEKTOVI [Suspect]
     Active Substance: BINIMETINIB
     Indication: MALIGNANT LYMPHOID NEOPLASM
     Route: 048
     Dates: start: 20190204
  15. ASPIRIN. [Concomitant]
     Active Substance: ASPIRIN

REACTIONS (2)
  - Dehydration [None]
  - Pneumonia [None]

NARRATIVE: CASE EVENT DATE: 20190813
